FAERS Safety Report 8210355-8 (Version None)
Quarter: 2012Q1

REPORT INFORMATION
  Report Type: 
  Country: None (occurrence: None)
  Receive Date: 20120314
  Receipt Date: 20110404
  Transmission Date: 20120608
  Serious: No
  Sender: FDA-Public Use
  Company Number: US-ASTRAZENECA-2011SE18778

PATIENT
  Age: 46 Year
  Sex: Male

DRUGS (11)
  1. SEROQUEL [Suspect]
     Route: 048
  2. SEROQUEL [Suspect]
     Indication: ANXIETY
     Route: 048
     Dates: end: 20090401
  3. SEROQUEL [Suspect]
     Route: 048
     Dates: start: 20090514
  4. SEROQUEL [Suspect]
     Indication: BIPOLAR DISORDER
     Route: 048
     Dates: end: 20090401
  5. SEROQUEL [Suspect]
     Route: 048
  6. SEROQUEL [Suspect]
     Indication: DEPRESSION
     Route: 048
     Dates: end: 20090401
  7. SEROQUEL [Suspect]
     Route: 048
     Dates: start: 20090514
  8. SEROQUEL [Suspect]
     Route: 048
     Dates: start: 20090514
  9. ATIVAN [Concomitant]
  10. TOPROL-XL [Suspect]
     Route: 048
     Dates: start: 20090430, end: 20090513
  11. SEROQUEL [Suspect]
     Route: 048

REACTIONS (3)
  - EMOTIONAL DISORDER [None]
  - DRUG DISPENSING ERROR [None]
  - DRUG DOSE OMISSION [None]
